FAERS Safety Report 20517312 (Version 3)
Quarter: 2022Q2

REPORT INFORMATION
  Report Type: Spontaneous
  Country: NZ (occurrence: NZ)
  Receive Date: 20220225
  Receipt Date: 20220414
  Transmission Date: 20220721
  Serious: Yes (Death)
  Sender: FDA-Public Use
  Company Number: NZ-MYLANLABS-2022M1015261

PATIENT
  Sex: Male

DRUGS (6)
  1. CLOZARIL [Suspect]
     Active Substance: CLOZAPINE
     Indication: Schizophrenia
     Dosage: UNK
     Route: 048
     Dates: start: 20070323
  2. CLOZARIL [Suspect]
     Active Substance: CLOZAPINE
     Dosage: 250 MILLIGRAM, QD
     Route: 048
     Dates: start: 2017
  3. ALLOPURINOL [Concomitant]
     Active Substance: ALLOPURINOL
     Indication: Gout
     Dosage: 150 MILLIGRAM, QD
     Route: 048
     Dates: start: 2017
  4. CILAZAPRIL ANHYDROUS [Concomitant]
     Active Substance: CILAZAPRIL ANHYDROUS
     Indication: Blood pressure measurement
     Dosage: 500 MILLIGRAM, QD
     Route: 048
     Dates: start: 2017
  5. LACTULOSE [Concomitant]
     Active Substance: LACTULOSE
     Indication: Abdominal discomfort
     Dosage: UNK, DOSE 10-20 MLS PRN BD
     Dates: start: 2017
  6. DOCUSATE SODIUM\SENNOSIDES A AND B [Concomitant]
     Active Substance: DOCUSATE SODIUM\SENNOSIDES A AND B
     Indication: Abdominal discomfort
     Dosage: UNK,DOSE ONE TO TWO PRN BD
     Dates: start: 2017

REACTIONS (2)
  - Acute kidney injury [Fatal]
  - Chronic kidney disease [Fatal]
